FAERS Safety Report 18729826 (Version 1)
Quarter: 2021Q1

REPORT INFORMATION
  Report Type: Spontaneous
  Country: US (occurrence: US)
  Receive Date: 20210112
  Receipt Date: 20210112
  Transmission Date: 20210419
  Serious: Yes (Hospitalization)
  Sender: FDA-Public Use
  Company Number: US-TORRENT-00010635

PATIENT
  Age: 48 Year
  Sex: Male

DRUGS (6)
  1. BENZTROPINE. [Concomitant]
     Active Substance: BENZTROPINE
     Indication: VAGOTOMY
     Dosage: 2 MG PO
  2. CLOZAPINE. [Concomitant]
     Active Substance: CLOZAPINE
     Indication: PRODUCT USED FOR UNKNOWN INDICATION
     Dosage: 150 MG/300 MG PO (TAKEN BY MOUTH)
  3. ACETAMINOPHEN. [Concomitant]
     Active Substance: ACETAMINOPHEN
     Indication: PAIN
  4. ARIPIPRAZOLE. [Suspect]
     Active Substance: ARIPIPRAZOLE
     Indication: PSYCHIATRIC EVALUATION
  5. LORAZEPAM. [Concomitant]
     Active Substance: LORAZEPAM
     Indication: MYALGIA
     Dosage: 2 MG PO
  6. PALIPERIDONE. [Concomitant]
     Active Substance: PALIPERIDONE
     Indication: PRODUCT USED FOR UNKNOWN INDICATION
     Dosage: Q4 WEEKS (EVERY 4 WEEKS)
     Route: 030

REACTIONS (1)
  - Pleurothotonus [Recovering/Resolving]
